FAERS Safety Report 6426628-5 (Version None)
Quarter: 2009Q4

REPORT INFORMATION
  Report Type: 
  Country: None (occurrence: None)
  Receive Date: 20091030
  Receipt Date: 20090511
  Transmission Date: 20100525
  Serious: Yes (Hospitalization, Other)
  Sender: FDA-Public Use
  Company Number: CL-56-2009

PATIENT
  Age: 12 Month
  Sex: Male

DRUGS (1)
  1. ONDANSETRON [Suspect]
     Indication: OVERDOSE
     Dosage: 56-64 MG ORAL; ONE DOSE
     Route: 048

REACTIONS (9)
  - ACCIDENTAL EXPOSURE [None]
  - BLOOD PRESSURE INCREASED [None]
  - DEPRESSED LEVEL OF CONSCIOUSNESS [None]
  - DYSKINESIA [None]
  - HEART RATE INCREASED [None]
  - MYOCLONUS [None]
  - NYSTAGMUS [None]
  - SOMNOLENCE [None]
  - STRIDOR [None]
